FAERS Safety Report 14004885 (Version 1)
Quarter: 2017Q3

REPORT INFORMATION
  Report Type: Spontaneous
  Country: US (occurrence: US)
  Receive Date: 20170922
  Receipt Date: 20170922
  Transmission Date: 20171128
  Serious: No
  Sender: FDA-Public Use
  Company Number: US-PFIZER INC-2017409285

PATIENT
  Age: 81 Year
  Sex: Female
  Weight: 71.67 kg

DRUGS (2)
  1. LYRICA [Suspect]
     Active Substance: PREGABALIN
     Indication: NEUROPATHY PERIPHERAL
     Dosage: 75MG, CAPSULE, ONE IN AM, 1 AT NOON, 2 AT BEDTIME
     Route: 048
     Dates: start: 2017
  2. LYRICA [Suspect]
     Active Substance: PREGABALIN
     Dosage: TAKING ONE IN THE AM AND TWO AT NIGHT
     Route: 048
     Dates: start: 201709, end: 20170920

REACTIONS (5)
  - Emotional disorder [Not Recovered/Not Resolved]
  - Intentional product use issue [Unknown]
  - Burning sensation [Not Recovered/Not Resolved]
  - Withdrawal syndrome [Not Recovered/Not Resolved]
  - Insomnia [Not Recovered/Not Resolved]

NARRATIVE: CASE EVENT DATE: 201709
